FAERS Safety Report 8539643-2 (Version None)
Quarter: 2012Q3

REPORT INFORMATION
  Report Type: 
  Country: None (occurrence: None)
  Receive Date: 20120726
  Receipt Date: 20120719
  Transmission Date: 20120928
  Serious: No
  Sender: FDA-Public Use
  Company Number: BE-ABBOTT-12P-013-0943290-00

PATIENT

DRUGS (3)
  1. HUMIRA [Suspect]
     Indication: RHEUMATOID ARTHRITIS
  2. HUMIRA [Suspect]
     Indication: POLYARTHRITIS
  3. HUMIRA [Suspect]
     Indication: PSORIASIS

REACTIONS (1)
  - PSORIASIS [None]
